FAERS Safety Report 8232207-X (Version None)
Quarter: 2012Q1

REPORT INFORMATION
  Report Type: 
  Country: None (occurrence: None)
  Receive Date: 20120323
  Receipt Date: 20120316
  Transmission Date: 20120608
  Serious: Yes (Other)
  Sender: FDA-Public Use
  Company Number: US-ABBOTT-12P-163-0916278-00

PATIENT
  Age: 43 Year
  Sex: Female

DRUGS (8)
  1. PROTONIX [Concomitant]
     Indication: PRODUCT USED FOR UNKNOWN INDICATION
  2. HUMIRA [Suspect]
     Indication: CROHN'S DISEASE
     Dates: start: 20120202
  3. WELLBUTRIN [Concomitant]
     Indication: DEPRESSION
  4. VENTOLIN [Concomitant]
     Indication: PRODUCT USED FOR UNKNOWN INDICATION
  5. VICODIN [Concomitant]
     Indication: PRODUCT USED FOR UNKNOWN INDICATION
  6. ENTOCORT EC [Concomitant]
     Indication: PRODUCT USED FOR UNKNOWN INDICATION
  7. ATENOLOL [Concomitant]
     Indication: PRODUCT USED FOR UNKNOWN INDICATION
  8. WELLBUTRIN [Concomitant]
     Indication: SMOKING CESSATION THERAPY

REACTIONS (3)
  - GASTROINTESTINAL OEDEMA [None]
  - DRUG INEFFECTIVE [None]
  - ABDOMINAL ADHESIONS [None]
